FAERS Safety Report 6270677-7 (Version None)
Quarter: 2009Q3

REPORT INFORMATION
  Report Type: 
  Country: None (occurrence: None)
  Receive Date: 20090716
  Receipt Date: 20090708
  Transmission Date: 20100115
  Serious: Yes (Disabling, Other)
  Sender: FDA-Public Use
  Company Number: PHHY2009GB28071

PATIENT
  Age: 53 Year
  Sex: Male
  Weight: 100 kg

DRUGS (27)
  1. ALISKIREN [Suspect]
     Indication: HYPERTENSION
     Dosage: 150 MG/DAY
     Route: 048
     Dates: start: 20090612, end: 20090616
  2. ALGESAL [Concomitant]
     Dosage: 50 G/DAY
  3. AMITRIPTYLINE HYDROCHLORIDE [Concomitant]
     Dosage: 50 MG, QD
  4. AMLODIPINE [Concomitant]
     Dosage: 50 MG, QD
  5. ASPIRIN [Concomitant]
     Dosage: 75 MG, QD
  6. CLENIL [Concomitant]
     Dosage: 100 UG, BID
  7. COD-LIVER OIL [Concomitant]
     Dosage: 1 DF, QD
  8. DIPYRIDAMOLE [Concomitant]
     Dosage: 200 MG, BID
  9. DOXAZOSIN MESYLATE [Concomitant]
     Dosage: 8 MG, QD
  10. EZETIMIBE [Concomitant]
     Dosage: 10 MG, QD
  11. FOLIC ACID [Concomitant]
     Dosage: 5 MG, QD
  12. FUROSEMIDE [Concomitant]
     Dosage: 40 MG, TID
  13. GAVISCON [Concomitant]
  14. GLYCERYL TRINITRATE [Concomitant]
     Dosage: 400 MG/DAY
  15. LANSOPRAZOLE [Concomitant]
     Dosage: 30 MG, QD
  16. LISINOPRIL [Concomitant]
     Dosage: 20 MG, BID
  17. METFORMIN HCL [Concomitant]
     Dosage: 500 MG, BID
  18. METHOTREXATE [Concomitant]
     Dosage: 15 MG, QW
  19. MULTI-VITAMIN [Concomitant]
     Dosage: 1 DF, QD
  20. MYCOTA [Concomitant]
  21. PREDNISOLONE [Concomitant]
     Dosage: 5 MG, QD
  22. ROSUVASTATIN CALCIUM [Concomitant]
     Dosage: 20 MG, QD
  23. SPIRONOLACTONE [Concomitant]
     Dosage: 50 MG, QD
  24. STRONTIUM RANELATE [Concomitant]
     Dosage: 2 G, QD
  25. TELMISARTAN [Concomitant]
     Dosage: 80 MG, QD
  26. VENTOLIN [Concomitant]
     Dosage: 100 UG/DAY
  27. POLYURETHANE [Concomitant]

REACTIONS (2)
  - FEELING ABNORMAL [None]
  - LETHARGY [None]
